FAERS Safety Report 7290686-9 (Version None)
Quarter: 2011Q1

REPORT INFORMATION
  Report Type: 
  Country: None (occurrence: None)
  Receive Date: 20110214
  Receipt Date: 20110207
  Transmission Date: 20110831
  Serious: Yes (Hospitalization, Other)
  Sender: FDA-Public Use
  Company Number: US-JNJFOC-20110202306

PATIENT
  Sex: Female
  Weight: 61.24 kg

DRUGS (2)
  1. LEVAQUIN [Suspect]
     Indication: POST PROCEDURAL INFECTION
     Route: 048
  2. HYDROCHLOROTHIAZIDE [Concomitant]
     Indication: DIURETIC THERAPY
     Route: 048

REACTIONS (3)
  - ARTHROPATHY [None]
  - TENDONITIS [None]
  - OEDEMA PERIPHERAL [None]
